FAERS Safety Report 6535375-0 (Version None)
Quarter: 2010Q1

REPORT INFORMATION
  Report Type: 
  Country: None (occurrence: None)
  Receive Date: 20100113
  Receipt Date: 20100107
  Transmission Date: 20100710
  Serious: Yes (Other)
  Sender: FDA-Public Use
  Company Number: JP-JNJFOC-20100102025

PATIENT
  Sex: Female
  Weight: 55 kg

DRUGS (3)
  1. DOXORUBICIN HCL [Suspect]
     Indication: OVARIAN CANCER RECURRENT
     Route: 042
  2. DOXORUBICIN HCL [Suspect]
     Route: 042
  3. PYDOXAL [Concomitant]
     Route: 048

REACTIONS (1)
  - HAND-FOOT-AND-MOUTH DISEASE [None]
